FAERS Safety Report 6032377-8 (Version None)
Quarter: 2008Q4

REPORT INFORMATION
  Report Type: 
  Country: None (occurrence: None)
  Receive Date: 20081224
  Receipt Date: 20080916
  Transmission Date: 20090506
  Serious: No
  Sender: FDA-Public Use
  Company Number: 2008PV036721

PATIENT
  Age: 47 Year
  Sex: Female

DRUGS (2)
  1. SYMLIN [Suspect]
     Indication: INSULIN RESISTANCE
     Dosage: ;TID;SC
     Route: 058
     Dates: start: 20080101, end: 20080101
  2. BYETTA [Concomitant]

REACTIONS (2)
  - BLOOD GLUCOSE INCREASED [None]
  - DRUG INEFFECTIVE [None]
